FAERS Safety Report 8230750-0 (Version None)
Quarter: 2012Q1

REPORT INFORMATION
  Report Type: 
  Country: None (occurrence: None)
  Receive Date: 20120323
  Receipt Date: 20120312
  Transmission Date: 20120608
  Serious: Yes (Hospitalization, Other)
  Sender: FDA-Public Use
  Company Number: GB-JNJFOC-20120212910

PATIENT
  Age: 69 Year
  Sex: Male
  Weight: 107 kg

DRUGS (5)
  1. HYDROCORTISONE [Concomitant]
     Indication: PREMEDICATION
  2. ACETAMINOPHEN [Concomitant]
     Indication: PREMEDICATION
     Route: 042
  3. ADALIMUMAB [Suspect]
     Indication: PSORIASIS
     Dosage: EVERY OTHER WEEK,  5 DOSES
     Route: 058
     Dates: end: 20111001
  4. REMICADE [Suspect]
     Indication: PSORIASIS
     Dosage: TOTAL DOSE 535 MG (TOTAL OF 4 INFUSIONS)
     Route: 042
     Dates: start: 20111012, end: 20120201
  5. ADALIMUMAB [Suspect]
     Dosage: LOADING DOSE
     Route: 058

REACTIONS (1)
  - LYMPHOMA [None]
